FAERS Safety Report 4316824-5 (Version None)
Quarter: 2004Q1

REPORT INFORMATION
  Report Type: 
  Country: None (occurrence: None)
  Receive Date: 20040311
  Receipt Date: 20040226
  Transmission Date: 20041129
  Serious: Yes (Hospitalization)
  Sender: FDA-Public Use
  Company Number: JP-JNJFOC-20040300522

PATIENT
  Age: 78 Year
  Sex: Female
  Weight: 49 kg

DRUGS (10)
  1. REMICADE [Suspect]
     Indication: RHEUMATOID ARTHRITIS
     Dosage: 3 MG/KG, 1 IN 1 AS NECESSARY, INTRAVENOUS DRIP
     Route: 041
     Dates: start: 20040121, end: 20040121
  2. REMICADE [Suspect]
     Indication: RHEUMATOID ARTHRITIS
     Dosage: 3 MG/KG, 1 IN 1 AS NECESSARY, INTRAVENOUS DRIP
     Route: 041
     Dates: start: 20040204, end: 20040204
  3. RHEUMATREX [Suspect]
     Indication: DRUG USE FOR UNKNOWN INDICATION
     Dosage: 8 MG, IN 1 WEEK, ORAL
     Route: 048
     Dates: start: 19971009, end: 20001004
  4. RHEUMATREX [Suspect]
     Dosage: 6 MG, IN 1 WEEK, ORAL
     Route: 048
     Dates: start: 20030903, end: 20040219
  5. NAIXAN (NAPROXEN SODIUM) [Concomitant]
  6. FOLIAMIN (FOLIC ACID) [Concomitant]
  7. MARZULENE-S (MARZULENE S) [Concomitant]
  8. ALFAROL (ALFACALCIDOL) [Concomitant]
  9. CALCIUM LACTATE (CALCIUM LACTATE) [Concomitant]
  10. NORVASC [Concomitant]

REACTIONS (3)
  - DRUG INTERACTION [None]
  - NOCARDIOSIS [None]
  - PNEUMOCOCCAL INFECTION [None]
